FAERS Safety Report 16805505 (Version 1)
Quarter: 2019Q3

REPORT INFORMATION
  Report Type: Report from Study
  Country: US (occurrence: US)
  Receive Date: 20190913
  Receipt Date: 20190913
  Transmission Date: 20191005
  Serious: Yes (Other)
  Sender: FDA-Public Use
  Company Number: US-BRISTOL-MYERS SQUIBB COMPANY-BMS-2019-086981

PATIENT
  Sex: Female

DRUGS (1)
  1. NIVOLUMAB [Suspect]
     Active Substance: NIVOLUMAB
     Indication: MALIGNANT MELANOMA
     Dosage: 480 MILLIGRAM, Q4WK
     Route: 042

REACTIONS (9)
  - Sarcoma [Unknown]
  - Nausea [Unknown]
  - Fatigue [Unknown]
  - Arthralgia [Recovering/Resolving]
  - Erythema [Unknown]
  - Sweat gland disorder [Unknown]
  - Rash papular [Unknown]
  - Metastases to central nervous system [Unknown]
  - Skin depigmentation [Unknown]
